FAERS Safety Report 5787291-X (Version None)
Quarter: 2008Q2

REPORT INFORMATION
  Report Type: 
  Country: None (occurrence: None)
  Receive Date: 20080625
  Receipt Date: 20080107
  Transmission Date: 20081010
  Serious: No
  Sender: FDA-Public Use
  Company Number: US-ASTRAZENECA-2007UW22028

PATIENT
  Age: 43 Year
  Sex: Female
  Weight: 131.1 kg

DRUGS (16)
  1. PULMICORT FLEXHALER [Suspect]
     Indication: SARCOIDOSIS
     Route: 055
     Dates: start: 20070824
  2. PULMICORT FLEXHALER [Suspect]
     Indication: BRONCHIAL HYPERREACTIVITY
     Route: 055
     Dates: start: 20070824
  3. PULMICORT FLEXHALER [Suspect]
     Indication: ASTHMA
     Route: 055
     Dates: start: 20070824
  4. MAXAIR [Concomitant]
  5. NYSTATIN [Concomitant]
  6. ZYPREXA [Concomitant]
  7. LEXAPRO [Concomitant]
  8. PREVACID [Concomitant]
  9. CALCIUM [Concomitant]
  10. VITAMINS AND MINERALS [Concomitant]
  11. KLOR-CON [Concomitant]
  12. MAXZIDE [Concomitant]
  13. RELAFEN [Concomitant]
  14. VICODIN [Concomitant]
  15. FUROSEMIDE [Concomitant]
  16. DIAZEPAM [Concomitant]

REACTIONS (1)
  - DYSPNOEA [None]
